FAERS Safety Report 24428490 (Version 2)
Quarter: 2024Q4

REPORT INFORMATION
  Report Type: Report from Study
  Country: US (occurrence: US)
  Receive Date: 20241011
  Receipt Date: 20241025
  Transmission Date: 20250114
  Serious: Yes (Other)
  Sender: Pyros Pharmaceuticals
  Company Number: US-PYROS PHARMACEUTICALS, INC-2024-PYROS-US000086

PATIENT
  Age: 0 Year
  Sex: Female
  Weight: 7.256 kg

DRUGS (2)
  1. VIGAFYDE [Suspect]
     Active Substance: VIGABATRIN
     Indication: Infantile spasms
     Dosage: 175 MG (1.75 ML), BID
     Route: 048
     Dates: start: 20240925, end: 202410
  2. VIGAFYDE [Suspect]
     Active Substance: VIGABATRIN
     Dosage: 175 MG (1.75 ML), BID
     Route: 048
     Dates: start: 202410

REACTIONS (8)
  - Seizure [Recovered/Resolved]
  - Drug ineffective [Recovered/Resolved]
  - Intentional dose omission [Unknown]
  - Appetite disorder [Recovering/Resolving]
  - Abdominal discomfort [Recovered/Resolved]
  - Somnolence [Not Recovered/Not Resolved]
  - Vomiting [Recovering/Resolving]
  - Diarrhoea [Recovered/Resolved]

NARRATIVE: CASE EVENT DATE: 20240926
